FAERS Safety Report 4355241-9 (Version None)
Quarter: 2004Q2

REPORT INFORMATION
  Report Type: 
  Country: None (occurrence: None)
  Receive Date: 20040504
  Receipt Date: 20040419
  Transmission Date: 20050107
  Serious: Yes (Hospitalization)
  Sender: FDA-Public Use
  Company Number: 2004SE01815

PATIENT
  Age: 22 Year
  Sex: Male
  Weight: 140 kg

DRUGS (5)
  1. SEROQUEL [Suspect]
     Indication: PSYCHOTIC DISORDER
     Dates: start: 20030601, end: 20031001
  2. SEROQUEL [Suspect]
     Indication: PSYCHOTIC DISORDER
     Dosage: 800 MG DAILY PO
     Route: 048
     Dates: start: 20031101
  3. ALOPAM [Concomitant]
  4. CIPRAMIL [Concomitant]
  5. IMOVANE [Concomitant]

REACTIONS (4)
  - BLOOD TRIGLYCERIDES INCREASED [None]
  - LIPIDS INCREASED [None]
  - PNEUMONIA [None]
  - PULMONARY EMBOLISM [None]
